FAERS Safety Report 6834502-5 (Version None)
Quarter: 2010Q3

REPORT INFORMATION
  Report Type: 
  Country: None (occurrence: None)
  Receive Date: 20100712
  Receipt Date: 20070611
  Transmission Date: 20110219
  Serious: No
  Sender: FDA-Public Use
  Company Number: US-PFIZER INC-2007026807

PATIENT
  Sex: Male
  Weight: 76.66 kg

DRUGS (4)
  1. CHANTIX [Suspect]
     Indication: SMOKING CESSATION THERAPY
     Dates: start: 20070301, end: 20070404
  2. ZOCOR [Concomitant]
     Indication: HYPERLIPIDAEMIA
  3. LEXAPRO [Concomitant]
     Indication: DEPRESSION
  4. XANAX [Concomitant]
     Indication: DEPRESSION

REACTIONS (5)
  - COGNITIVE DISORDER [None]
  - FEELING ABNORMAL [None]
  - HEAD DISCOMFORT [None]
  - NAUSEA [None]
  - VOMITING [None]
